FAERS Safety Report 9172625 (Version 1)
Quarter: 2012Q4

REPORT INFORMATION
  Report Type: 
  Country: GR (occurrence: GR)
  Receive Date: 20120911
  Receipt Date: 20120911
  Transmission Date: 20130627
  Serious: Yes (Hospitalization, Other)
  Sender: FDA-Public Use
  Company Number: GR-ROCHE-1122149

PATIENT
  Age: 60 Year
  Sex: Female

DRUGS (1)
  1. MABTHERA [Suspect]
     Indication: RHEUMATOID ARTHRITIS
     Route: 065

REACTIONS (4)
  - Dyspnoea [Recovered/Resolved]
  - Ischaemia [Recovered/Resolved]
  - Blood glucose fluctuation [Recovered/Resolved]
  - Urinary tract infection [Recovered/Resolved]
